FAERS Safety Report 18672791 (Version 1)
Quarter: 2020Q4

REPORT INFORMATION
  Report Type: Spontaneous
  Country: GB (occurrence: GB)
  Receive Date: 20201228
  Receipt Date: 20201228
  Transmission Date: 20210114
  Serious: Yes (Other)
  Sender: FDA-Public Use
  Company Number: GB-TEVA-2020-GB-1862368

PATIENT
  Age: 51 Year
  Sex: Female
  Weight: 60 kg

DRUGS (1)
  1. ZOLEDRONIC ACID [Suspect]
     Active Substance: ZOLEDRONIC ACID
     Dosage: 4MG/5ML
     Dates: start: 20201123

REACTIONS (4)
  - Pyrexia [Unknown]
  - Drug hypersensitivity [Recovered/Resolved]
  - Pain [Unknown]
  - Chest discomfort [Unknown]

NARRATIVE: CASE EVENT DATE: 20201123
